FAERS Safety Report 26120155 (Version 1)
Quarter: 2025Q4

REPORT INFORMATION
  Report Type: Spontaneous
  Country: US (occurrence: US)
  Receive Date: 20251204
  Receipt Date: 20251204
  Transmission Date: 20260118
  Serious: Yes (Hospitalization)
  Sender: AMGEN
  Company Number: US-AMGEN-USASP2025233341

PATIENT
  Age: 73 Year
  Sex: Male

DRUGS (4)
  1. PREDNISONE [Suspect]
     Active Substance: PREDNISONE
     Indication: Vasculitis
     Dosage: UNK
     Route: 065
  2. TOCILIZUMAB [Concomitant]
     Active Substance: TOCILIZUMAB
  3. APIXABAN [Concomitant]
     Active Substance: APIXABAN
  4. COLCHICINE [Concomitant]
     Active Substance: COLCHICINE

REACTIONS (2)
  - Metastatic mesothelioma [Unknown]
  - Pericardial mesothelioma malignant recurrent [Unknown]
